FAERS Safety Report 17906533 (Version 1)
Quarter: 2020Q2

REPORT INFORMATION
  Report Type: Spontaneous
  Country: US (occurrence: US)
  Receive Date: 20200616
  Receipt Date: 20200616
  Transmission Date: 20200714
  Serious: No
  Sender: FDA-Public Use
  Company Number: US-ROCHE-2528629

PATIENT
  Sex: Female
  Weight: 59.93 kg

DRUGS (5)
  1. FLUZONE [INFLUENZA VACCINE] [Concomitant]
     Dosage: Q 1 WEEK
     Route: 030
     Dates: start: 20181206
  2. PLAQUENIL [Concomitant]
     Active Substance: HYDROXYCHLOROQUINE SULFATE
     Dosage: ONGOING: UNKNOWN
     Route: 048
     Dates: start: 20140319
  3. HYDROXYCHLOROQUINE [Concomitant]
     Active Substance: HYDROXYCHLOROQUINE
     Dosage: ONGOING: UNKNOWN
     Route: 048
     Dates: start: 20150320
  4. METHOTREXATE. [Concomitant]
     Active Substance: METHOTREXATE
     Dosage: ONGOING: UNKNOWN
     Route: 065
     Dates: start: 20140319
  5. ACTEMRA [Suspect]
     Active Substance: TOCILIZUMAB
     Indication: RHEUMATOID ARTHRITIS
     Route: 058
     Dates: start: 20160728

REACTIONS (1)
  - Weight increased [Unknown]
